FAERS Safety Report 5261658-0 (Version None)
Quarter: 2007Q1

REPORT INFORMATION
  Report Type: 
  Country: None (occurrence: None)
  Receive Date: 20061208
  Receipt Date: 20060714
  Transmission Date: 20070707
  Serious: Yes (Other)
  Sender: FDA-Public Use
  Company Number: USA-2006-0024625

PATIENT
  Age: 45 Year
  Sex: Female
  Weight: 77.1 kg

DRUGS (3)
  1. OXYCONTIN [Suspect]
     Indication: NEURALGIA
     Dosage: 160 MG, Q8H
     Dates: start: 20060615, end: 20060815
  2. PERCOCET [Concomitant]
  3. LYRICA [Concomitant]

REACTIONS (5)
  - DRUG ABUSER [None]
  - DRUG WITHDRAWAL SYNDROME [None]
  - INADEQUATE ANALGESIA [None]
  - INTENTIONAL DRUG MISUSE [None]
  - PAIN [None]
